FAERS Safety Report 11332501 (Version 1)
Quarter: 2015Q3

REPORT INFORMATION
  Report Type: Spontaneous
  Country: US (occurrence: US)
  Receive Date: 20150803
  Receipt Date: 20150803
  Transmission Date: 20151125
  Serious: No
  Sender: FDA-Public Use
  Company Number: US-ELI_LILLY_AND_COMPANY-US200809004041

PATIENT
  Sex: Male

DRUGS (3)
  1. ZYPREXA [Suspect]
     Active Substance: OLANZAPINE
     Dosage: 20 MG, UNK
     Dates: start: 2005
  2. PROXETINE [Concomitant]
     Dosage: 30 MG, UNK
  3. MIRAPEX [Concomitant]
     Active Substance: PRAMIPEXOLE DIHYDROCHLORIDE
     Dosage: 0.5 UNK, UNK

REACTIONS (2)
  - Dysphagia [Not Recovered/Not Resolved]
  - Oesophageal disorder [Not Recovered/Not Resolved]
